FAERS Safety Report 21446186 (Version 1)
Quarter: 2022Q4

REPORT INFORMATION
  Report Type: Spontaneous
  Country: CA (occurrence: CA)
  Receive Date: 20221012
  Receipt Date: 20221012
  Transmission Date: 20230113
  Serious: Yes (Other)
  Sender: FDA-Public Use
  Company Number: CA-PFIZER INC-2020460838

PATIENT
  Age: 44 Year
  Sex: Female
  Weight: 65 kg

DRUGS (7)
  1. RUXIENCE [Suspect]
     Active Substance: RITUXIMAB-PVVR
     Indication: Granulomatosis with polyangiitis
     Dosage: 500 MG ONCE (1 DOSE)
     Route: 042
     Dates: start: 20201231, end: 20201231
  2. RUXIENCE [Suspect]
     Active Substance: RITUXIMAB-PVVR
     Indication: Microscopic polyangiitis
     Dosage: 500 MG ONE TIME DOSE
     Route: 042
  3. RUXIENCE [Suspect]
     Active Substance: RITUXIMAB-PVVR
     Dosage: 500 MG ONE TIME DOSE
     Route: 042
     Dates: start: 20211008
  4. BENADRYL [Concomitant]
     Active Substance: DIPHENHYDRAMINE HYDROCHLORIDE
     Indication: Premedication
     Dosage: 50 MG
     Dates: start: 20201231, end: 20201231
  5. METHYLPREDNISOLONE [Concomitant]
     Active Substance: METHYLPREDNISOLONE
     Indication: Premedication
     Dosage: 100 MG
     Dates: start: 20201231, end: 20201231
  6. SEPTRA [Concomitant]
     Active Substance: SULFAMETHOXAZOLE\TRIMETHOPRIM
     Dosage: 1 DF , UNKNOWN DOSE
     Route: 065
  7. TYLENOL [Concomitant]
     Active Substance: ACETAMINOPHEN
     Indication: Premedication
     Dosage: 650 MG
     Dates: start: 20201231, end: 20201231

REACTIONS (11)
  - Immunosuppression [Unknown]
  - Blood pressure fluctuation [Unknown]
  - Vessel puncture site occlusion [Unknown]
  - Anxiety [Not Recovered/Not Resolved]
  - Asthenia [Unknown]
  - Somnolence [Not Recovered/Not Resolved]
  - Malaise [Unknown]
  - Off label use [Unknown]
  - Off label use [Unknown]
  - Intentional product use issue [Unknown]
  - Suspected COVID-19 [Not Recovered/Not Resolved]

NARRATIVE: CASE EVENT DATE: 20201231
